FAERS Safety Report 13211020 (Version 1)
Quarter: 2017Q1

REPORT INFORMATION
  Report Type: Spontaneous
  Country: CH (occurrence: CH)
  Receive Date: 20170210
  Receipt Date: 20170210
  Transmission Date: 20170428
  Serious: Yes (Hospitalization, Other)
  Sender: FDA-Public Use
  Company Number: CH-ROCHE-1889826

PATIENT
  Age: 9 Day
  Sex: Female
  Weight: 2.02 kg

DRUGS (22)
  1. PULMICORT RESPULES [Concomitant]
     Active Substance: BUDESONIDE
     Indication: ASTHMA
     Route: 064
  2. AMBISOME [Concomitant]
     Active Substance: AMPHOTERICIN B
     Indication: OROPHARYNGEAL CANDIDIASIS
     Route: 064
  3. CELESTONE [Concomitant]
     Active Substance: BETAMETHASONE
     Indication: NEONATAL RESPIRATORY DISTRESS SYNDROME
     Route: 064
  4. DORMICUM (ORAL) [Suspect]
     Active Substance: MIDAZOLAM MALEATE
     Indication: INSOMNIA
     Route: 064
  5. MORPHINE [Suspect]
     Active Substance: MORPHINE
     Indication: INTERVERTEBRAL DISC PROTRUSION
     Route: 064
  6. MST CONTINUS [Suspect]
     Active Substance: MORPHINE SULFATE
     Indication: INTERVERTEBRAL DISC PROTRUSION
     Route: 064
  7. VANNAIR [Concomitant]
     Active Substance: BUDESONIDE\FORMOTEROL FUMARATE DIHYDRATE
     Indication: ASTHMA
     Route: 064
  8. PANTOZOL (SWITZERLAND) [Concomitant]
     Active Substance: PANTOPRAZOLE SODIUM
     Indication: GASTROOESOPHAGEAL REFLUX DISEASE
     Route: 064
  9. ZOFRAN [Concomitant]
     Active Substance: ONDANSETRON HYDROCHLORIDE
     Indication: NAUSEA
     Route: 064
  10. VALIUM [Suspect]
     Active Substance: DIAZEPAM
     Indication: EPILEPSY
     Route: 064
  11. RIVOTRIL [Suspect]
     Active Substance: CLONAZEPAM
     Indication: EPILEPSY
     Route: 064
  12. ADALAT CR 30 [Concomitant]
     Indication: UTERINE CONTRACTIONS DURING PREGNANCY
     Route: 064
  13. CLEXANE [Concomitant]
     Active Substance: ENOXAPARIN SODIUM
     Indication: THROMBOSIS PROPHYLAXIS
     Route: 064
  14. IPRATROPIUM BROMIDE/SALBUTAMOL SULFATE [Concomitant]
     Active Substance: ALBUTEROL SULFATE\IPRATROPIUM BROMIDE
     Indication: ASTHMA
     Dosage: DRUG REPORTED AS DOSPIR DOSIER-AEROSOL
     Route: 064
  15. NEXIUM [Concomitant]
     Active Substance: ESOMEPRAZOLE MAGNESIUM
     Indication: GASTROOESOPHAGEAL REFLUX DISEASE
     Route: 064
  16. DAFALGAN [Concomitant]
     Active Substance: ACETAMINOPHEN
     Indication: INTERVERTEBRAL DISC PROTRUSION
     Route: 064
  17. DIANE (CYPROTERONE ACETATE\ETHINYL ESTRADIOL) [Suspect]
     Active Substance: CYPROTERONE ACETATE\ETHINYL ESTRADIOL
     Indication: ORAL CONTRACEPTION
     Route: 064
  18. FOLIC ACID. [Concomitant]
     Active Substance: FOLIC ACID
     Indication: PROPHYLAXIS OF NEURAL TUBE DEFECT
     Route: 064
  19. VENTOLIN [Concomitant]
     Active Substance: ALBUTEROL SULFATE
     Indication: ASTHMA
     Route: 064
  20. MYCOSTATINE [Concomitant]
     Active Substance: NYSTATIN
     Indication: OROPHARYNGEAL CANDIDIASIS
     Route: 064
  21. MORPHINE [Suspect]
     Active Substance: MORPHINE
     Indication: WITHDRAWAL SYNDROME
     Route: 065
     Dates: start: 20161102, end: 201611
  22. SERETIDE [Concomitant]
     Active Substance: FLUTICASONE PROPIONATE\SALMETEROL XINAFOATE
     Indication: ASTHMA
     Route: 064

REACTIONS (3)
  - Drug withdrawal syndrome neonatal [Recovered/Resolved]
  - Foetal growth restriction [Not Recovered/Not Resolved]
  - Foetal exposure during pregnancy [Unknown]

NARRATIVE: CASE EVENT DATE: 20161102
